FAERS Safety Report 8692079 (Version 3)
Quarter: 2013Q3

REPORT INFORMATION
  Report Type: Spontaneous
  Country: US (occurrence: US)
  Receive Date: 20120730
  Receipt Date: 20130920
  Transmission Date: 20140515
  Serious: Yes (Death)
  Sender: FDA-Public Use
  Company Number: US-GLAXOSMITHKLINE-A0978415A

PATIENT
  Age: 46 Year
  Sex: Male

DRUGS (4)
  1. VENTOLIN [Suspect]
     Indication: RESPIRATORY DISORDER
     Dates: start: 201304
  2. IMITREX SPRAY [Suspect]
     Indication: MIGRAINE
     Dosage: 20MG UNKNOWN
     Route: 045
     Dates: start: 200903
  3. IMITREX [Suspect]
     Indication: MIGRAINE
     Dosage: 50MG AS REQUIRED
     Route: 048
  4. NO CONCURRENT MEDICATION [Concomitant]

REACTIONS (7)
  - Sedation [Recovered/Resolved]
  - Feeling abnormal [Recovered/Resolved]
  - Malaise [Recovered/Resolved]
  - Oral discomfort [Recovered/Resolved]
  - Throat irritation [Unknown]
  - Rhinorrhoea [Unknown]
  - Death [Fatal]
